FAERS Safety Report 10921617 (Version 1)
Quarter: 2015Q1

REPORT INFORMATION
  Report Type: Spontaneous
  Country: AT (occurrence: AT)
  Receive Date: 20150317
  Receipt Date: 20150317
  Transmission Date: 20150721
  Serious: Yes (Death, Hospitalization, Other)
  Sender: FDA-Public Use
  Company Number: AT-ABBVIE-15P-009-1361390-00

PATIENT
  Sex: Male

DRUGS (1)
  1. DUODOPA [Suspect]
     Active Substance: CARBIDOPA\LEVODOPA
     Indication: PARKINSON^S DISEASE
     Dosage: MD: 11ML; ED: 2 ML; CR: 5.6 ML/HR
     Route: 050
     Dates: start: 20110404

REACTIONS (3)
  - Pneumonia [Fatal]
  - Fall [Unknown]
  - Femoral neck fracture [Fatal]
